FAERS Safety Report 7101791-1 (Version None)
Quarter: 2010Q4

REPORT INFORMATION
  Report Type: 
  Country: None (occurrence: None)
  Receive Date: 20101115
  Receipt Date: 20101103
  Transmission Date: 20110411
  Serious: Yes (Other)
  Sender: FDA-Public Use
  Company Number: US-SANOFI-AVENTIS-2010SA066751

PATIENT
  Age: 74 Year
  Sex: Male

DRUGS (4)
  1. MULTAQ [Suspect]
     Indication: ATRIAL FIBRILLATION
     Route: 048
     Dates: start: 20101001
  2. THERAPEUTIC RADIOPHARMACEUTICALS [Concomitant]
     Indication: PROSTATE CANCER
  3. DIGOXIN [Concomitant]
  4. WARFARIN [Concomitant]

REACTIONS (4)
  - ANAL FISSURE [None]
  - ATRIAL FIBRILLATION [None]
  - CLAUSTROPHOBIA [None]
  - HAEMORRHOIDS [None]
